FAERS Safety Report 25675117 (Version 1)
Quarter: 2025Q3

REPORT INFORMATION
  Report Type: Other
  Country: US (occurrence: US)
  Receive Date: 20250813
  Receipt Date: 20250813
  Transmission Date: 20251020
  Serious: Yes (Hospitalization, Other)
  Sender: ANI
  Company Number: US-ANIPHARMA-024093

PATIENT
  Age: 40 Year
  Sex: Male

DRUGS (3)
  1. FLUOXETINE [Suspect]
     Active Substance: FLUOXETINE HYDROCHLORIDE
     Indication: Product used for unknown indication
  2. DILTIAZEM [Concomitant]
     Active Substance: DILTIAZEM
     Indication: Product used for unknown indication
  3. METOPROLOL [Concomitant]
     Active Substance: METOPROLOL
     Indication: Product used for unknown indication

REACTIONS (7)
  - Haemorrhagic transformation stroke [Recovering/Resolving]
  - Toxicity to various agents [Unknown]
  - Bradycardia [Recovering/Resolving]
  - Cardiogenic shock [Recovering/Resolving]
  - Hypoperfusion [Recovering/Resolving]
  - Cerebral haemorrhage [Recovering/Resolving]
  - Overdose [Unknown]
